FAERS Safety Report 5358045-3 (Version None)
Quarter: 2007Q2

REPORT INFORMATION
  Report Type: 
  Country: None (occurrence: None)
  Receive Date: 20070530
  Receipt Date: 20070205
  Transmission Date: 20071010
  Serious: Yes (Other)
  Sender: FDA-Public Use
  Company Number: US200611002829

PATIENT
  Age: 44 Year
  Sex: Male
  Weight: 111.1 kg

DRUGS (4)
  1. ZYPREXA [Suspect]
     Dosage: SEE IMAGE
     Dates: start: 20001001
  2. LITHIUM CARBONATE [Concomitant]
  3. CELEXA [Concomitant]
  4. ZOLOFT [Concomitant]

REACTIONS (8)
  - BLOOD CHOLESTEROL INCREASED [None]
  - BLOOD TRIGLYCERIDES INCREASED [None]
  - DIABETES MELLITUS [None]
  - DIABETIC KETOACIDOSIS [None]
  - HYPERGLYCAEMIA [None]
  - METABOLIC DISORDER [None]
  - PAIN [None]
  - PANCREATITIS [None]
